FAERS Safety Report 4324771-8 (Version None)
Quarter: 2004Q1

REPORT INFORMATION
  Report Type: 
  Country: None (occurrence: None)
  Receive Date: 20040326
  Receipt Date: 20040120
  Transmission Date: 20041129
  Serious: Yes (Death, Hospitalization)
  Sender: FDA-Public Use
  Company Number: FR-GLAXOSMITHKLINE-A0493978A

PATIENT
  Age: 74 Year
  Sex: Female

DRUGS (9)
  1. NAVELBINE [Suspect]
     Indication: NON-SMALL CELL LUNG CANCER
     Dosage: 90MG SINGLE DOSE
     Route: 048
     Dates: start: 20031216, end: 20031216
  2. PREVISCAN [Concomitant]
     Indication: PROPHYLAXIS
     Route: 048
     Dates: start: 20031001
  3. FENOFIBRATE [Concomitant]
  4. FLUOXETINE [Concomitant]
     Dosage: 20MG PER DAY
     Route: 048
  5. FUROSEMIDE [Concomitant]
     Dosage: 60MG PER DAY
     Route: 048
  6. FERROUS SULFATE TAB [Concomitant]
  7. ACETAMINOPHEN + CODEINE [Concomitant]
     Route: 048
  8. LORAZEPAM [Concomitant]
     Dosage: 1TAB PER DAY
     Route: 048
  9. ATORVASTATIN [Concomitant]
     Dosage: 10MG PER DAY
     Route: 048

REACTIONS (20)
  - AKINESIA [None]
  - C-REACTIVE PROTEIN INCREASED [None]
  - CARDIAC DISORDER [None]
  - CARDIAC FAILURE [None]
  - CARDIOMEGALY [None]
  - CEREBROVASCULAR ACCIDENT [None]
  - DEPRESSED LEVEL OF CONSCIOUSNESS [None]
  - DYSPNOEA [None]
  - FACE INJURY [None]
  - FALL [None]
  - HAEMATOMA [None]
  - HEMIPLEGIA [None]
  - LUNG DISORDER [None]
  - MALAISE [None]
  - MITRAL VALVE INCOMPETENCE [None]
  - MYOCARDIAL INFARCTION [None]
  - RESPIRATORY DISTRESS [None]
  - RIGHT VENTRICULAR FAILURE [None]
  - SINUS TACHYCARDIA [None]
  - TACHYPNOEA [None]
